FAERS Safety Report 8064231-4 (Version None)
Quarter: 2012Q1

REPORT INFORMATION
  Report Type: 
  Country: None (occurrence: None)
  Receive Date: 20120123
  Receipt Date: 20120118
  Transmission Date: 20120608
  Serious: No
  Sender: FDA-Public Use
  Company Number: US-PFIZER INC-2012014836

PATIENT
  Sex: Male

DRUGS (1)
  1. IBUPROFEN (ADVIL) [Suspect]
     Indication: HEADACHE
     Dosage: UNK, AS NEEDED
     Route: 048

REACTIONS (2)
  - HAEMATURIA [None]
  - ABDOMINAL PAIN UPPER [None]
